FAERS Safety Report 21186386 (Version 1)
Quarter: 2022Q3

REPORT INFORMATION
  Report Type: Report from Study
  Country: CN (occurrence: CN)
  Receive Date: 20220808
  Receipt Date: 20220808
  Transmission Date: 20221027
  Serious: No
  Sender: FDA-Public Use
  Company Number: CN-BAXTER-2022BAX014253

PATIENT
  Age: 72 Year
  Sex: Male
  Weight: 60 kg

DRUGS (11)
  1. AMINO ACIDS\DEXTROSE\ELECTROLYTES NOS\SOYBEAN OIL [Suspect]
     Active Substance: AMINO ACIDS\DEXTROSE\ELECTROLYTES NOS\SOYBEAN OIL
     Indication: Product used for unknown indication
     Dosage: 1500 ML(MILLILITERS), AT AN INFUSION RATE OF 3ML/KG/H
     Route: 065
     Dates: start: 20210404, end: 20210409
  2. VITAMINS [Concomitant]
     Active Substance: VITAMINS
     Indication: Drug therapy
     Dosage: 5 ML (MILLILITER)
     Route: 065
     Dates: start: 20210404, end: 20210409
  3. UNSPECIFIED INGREDIENT [Concomitant]
     Active Substance: UNSPECIFIED INGREDIENT
     Indication: Drug therapy
     Dosage: 70 ML (MILLILITER)
     Route: 065
     Dates: start: 20210404, end: 20210409
  4. WATER [Concomitant]
     Active Substance: WATER
     Indication: Drug therapy
     Dosage: 10 ML (MILLILITER)
     Route: 065
     Dates: start: 20210404, end: 20210409
  5. INSULIN NOS [Concomitant]
     Active Substance: INSULIN NOS
     Indication: Drug therapy
     Dosage: 20 IU
     Route: 065
     Dates: start: 20210404, end: 20210409
  6. ILAPRAZOLE [Concomitant]
     Active Substance: ILAPRAZOLE
     Indication: Antacid therapy
     Dosage: 10 MILLIGRAM (MG), ONCE DAILY ADMINISTERED VIA INTRAVENOUS (PERI PHERAL VEIN/CENTRAL VEIN)
     Route: 042
     Dates: start: 20210403
  7. CEFTAZIDIME [Concomitant]
     Active Substance: CEFTAZIDIME
     Indication: Antiinflammatory therapy
     Dosage: 3 G (GRAM) TWICE DAILY, ADMINISTERED VIA INTRAVENOUS (PERI PHERAL VEIN/CENTRAL VEIN) ROUTE
     Route: 042
     Dates: start: 20210403
  8. VITAMINS [Concomitant]
     Active Substance: VITAMINS
     Indication: Vitamin supplementation
     Dosage: 5 MILLILITER (ML), ONCE DAILY ADMINISTERED VIA INTRAVENOUS (PERI PHERAL VEIN/CENTRAL VEIN)
     Route: 042
     Dates: start: 20210404
  9. ALBUMIN HUMAN [Concomitant]
     Active Substance: ALBUMIN HUMAN
     Indication: Supplementation therapy
     Dosage: 20 G (GRAM), ONCE DAILY ADMINISTERED VIA INTRAVENOUS (PERI PHERAL VEIN/CENTRAL VEIN)
     Route: 042
     Dates: start: 20210408
  10. Morinidazole and Sodium Chloride [Concomitant]
     Indication: Antiinflammatory therapy
     Dosage: 0.5 G (GRAM), TWICE DAILY ADMINISTERED VIA INTRAVENOUS (PERI PHERAL VEIN/CENTRAL VEIN) ROUTE
     Route: 042
     Dates: start: 20210403
  11. NADROPARIN CALCIUM [Concomitant]
     Active Substance: NADROPARIN CALCIUM
     Indication: Anticoagulant therapy
     Dosage: 4100 IU, ONCE DAILY
     Route: 058
     Dates: start: 20210403

REACTIONS (1)
  - Dyspnoea [Not Recovered/Not Resolved]

NARRATIVE: CASE EVENT DATE: 20210408
